FAERS Safety Report 5927455-5 (Version None)
Quarter: 2008Q4

REPORT INFORMATION
  Report Type: 
  Country: None (occurrence: None)
  Receive Date: 20081022
  Receipt Date: 20081022
  Transmission Date: 20090506
  Serious: Yes (Other)
  Sender: FDA-Public Use
  Company Number: None

PATIENT
  Sex: Female
  Weight: 63.5036 kg

DRUGS (1)
  1. MOBIC [Suspect]
     Indication: RHEUMATOID ARTHRITIS
     Dosage: 7.5 1 EVERY MORNING

REACTIONS (1)
  - ALOPECIA [None]
